FAERS Safety Report 5997544-8 (Version None)
Quarter: 2008Q4

REPORT INFORMATION
  Report Type: 
  Country: None (occurrence: None)
  Receive Date: 20081212
  Receipt Date: 20081117
  Transmission Date: 20090506
  Serious: No
  Sender: FDA-Public Use
  Company Number: US-ABBOTT-08P-163-0488046-00

PATIENT
  Sex: Female
  Weight: 51.756 kg

DRUGS (7)
  1. HUMIRA [Suspect]
     Indication: PSORIATIC ARTHROPATHY
     Route: 058
     Dates: start: 20040101
  2. HUMIRA [Suspect]
     Route: 058
     Dates: start: 20080801
  3. MORPHINE SULFATE [Concomitant]
     Indication: DRUG USE FOR UNKNOWN INDICATION
  4. BISACODYL [Concomitant]
     Indication: CONSTIPATION PROPHYLAXIS
  5. DICLOFENAC [Concomitant]
     Indication: MUSCLE RELAXANT THERAPY
  6. ESOMEPRAZOLE SODIUM [Concomitant]
     Indication: GASTROOESOPHAGEAL REFLUX DISEASE
  7. SUMATRIPTAN [Concomitant]
     Indication: MIGRAINE
     Route: 048

REACTIONS (3)
  - DRUG INEFFECTIVE [None]
  - PAIN [None]
  - PSORIASIS [None]
